FAERS Safety Report 9682040 (Version 2)
Quarter: 2013Q4

REPORT INFORMATION
  Report Type: Report from Study
  Country: JP (occurrence: JP)
  Receive Date: 20131111
  Receipt Date: 20131126
  Transmission Date: 20140711
  Serious: Yes (Other)
  Sender: FDA-Public Use
  Company Number: JP-PFIZER INC-2013317573

PATIENT
  Age: 59 Year
  Sex: Female

DRUGS (4)
  1. FLUOROURACIL [Suspect]
     Indication: BREAST CANCER STAGE III
     Dosage: 500 MG/M2, CYCLIC (EVERY 21 DAYS FOR 4 CYCLES)
     Route: 042
  2. PACLITAXEL [Suspect]
     Indication: BREAST CANCER STAGE III
     Dosage: 80 MG/M2, CYCLIC  (FOR 12 WEEKS)
     Route: 041
  3. EPIRUBICIN [Suspect]
     Indication: BREAST CANCER STAGE III
     Dosage: 100 MG/M2, CYCLIC (EVERY 21 DAYS FOR 4 CYCLES)
     Route: 042
  4. CYCLOPHOSPHAMIDE [Suspect]
     Indication: BREAST CANCER STAGE III
     Dosage: 500 MG/M2, CYCLIC
     Route: 042

REACTIONS (1)
  - Interstitial lung disease [Recovered/Resolved]
